FAERS Safety Report 21039893 (Version 2)
Quarter: 2022Q3

REPORT INFORMATION
  Report Type: Spontaneous
  Country: US (occurrence: US)
  Receive Date: 20220704
  Receipt Date: 20220713
  Transmission Date: 20221026
  Serious: Yes (Other)
  Sender: FDA-Public Use
  Company Number: US-TAKEDA-2022TUS044213

PATIENT
  Age: 51 Year
  Sex: Female
  Weight: 87 kg

DRUGS (15)
  1. TRINTELLIX [Suspect]
     Active Substance: VORTIOXETINE HYDROBROMIDE
     Indication: Depression
     Dosage: 10 MILLIGRAM, QD
     Route: 048
     Dates: start: 20220617, end: 20220621
  2. TRINTELLIX [Suspect]
     Active Substance: VORTIOXETINE HYDROBROMIDE
     Dosage: 10 MILLIGRAM, QD
     Route: 065
     Dates: start: 20220621, end: 20220623
  3. XANAX [Concomitant]
     Active Substance: ALPRAZOLAM
     Indication: Anxiety
     Dosage: 1 MILLIGRAM
     Route: 048
  4. POTASSIUM [Concomitant]
     Active Substance: POTASSIUM
     Dosage: 10 MILLIEQUIVALENT, QD
     Route: 065
  5. PEPCID [Concomitant]
     Active Substance: FAMOTIDINE
     Indication: Gastrooesophageal reflux disease
     Dosage: 40 MILLIGRAM, BID
     Route: 065
  6. ZEBETA [Concomitant]
     Active Substance: BISOPROLOL FUMARATE
     Dosage: 5 MILLIGRAM, BID
     Route: 065
  7. HYDROCHLOROTHIAZIDE [Concomitant]
     Active Substance: HYDROCHLOROTHIAZIDE
     Dosage: 25 MILLIGRAM, QD
     Route: 065
  8. NAPROXEN [Concomitant]
     Active Substance: NAPROXEN
     Dosage: 500 MILLIGRAM, BID
     Route: 065
  9. VITAMIN C [Concomitant]
     Active Substance: ASCORBIC ACID
     Dosage: 500 MILLIGRAM, QD
     Route: 065
  10. MELATONIN [Concomitant]
     Active Substance: MELATONIN
     Dosage: 5 MILLIGRAM
     Route: 065
  11. VITAMIN D3 [Concomitant]
     Active Substance: CHOLECALCIFEROL
     Dosage: UNK UNK, QD
     Route: 065
  12. VITAMINS [Concomitant]
     Active Substance: VITAMINS
     Dosage: UNK UNK, QD
     Route: 065
  13. ZINC OXIDE [Concomitant]
     Active Substance: ZINC OXIDE
     Dosage: UNK UNK, QD
     Route: 065
  14. FISH OIL\OMEGA-3 FATTY ACIDS [Concomitant]
     Active Substance: FISH OIL\OMEGA-3 FATTY ACIDS
     Dosage: UNK UNK, QD
     Route: 065
  15. TRAMADOL [Concomitant]
     Active Substance: TRAMADOL
     Indication: Pain
     Dosage: 50 MILLIGRAM, BID
     Route: 065

REACTIONS (5)
  - Bradycardia [Unknown]
  - Blood pressure increased [Recovered/Resolved]
  - Palpitations [Unknown]
  - Heart rate decreased [Unknown]
  - Headache [Unknown]

NARRATIVE: CASE EVENT DATE: 20220617
